FAERS Safety Report 10708086 (Version 3)
Quarter: 2015Q1

REPORT INFORMATION
  Report Type: Spontaneous
  Country: US (occurrence: US)
  Receive Date: 20150113
  Receipt Date: 20150326
  Transmission Date: 20150721
  Serious: Yes (Other)
  Sender: FDA-Public Use
  Company Number: US-BRISTOL-MYERS SQUIBB COMPANY-BMS-2014-003947

PATIENT
  Sex: Male

DRUGS (1)
  1. YERVOY [Suspect]
     Active Substance: IPILIMUMAB
     Indication: MALIGNANT MELANOMA
     Dosage: UNK UNK, Q3WK; 4 DOSES
     Route: 042
     Dates: start: 20141007, end: 20141230

REACTIONS (2)
  - Autoimmune pancreatitis [Unknown]
  - Clostridium difficile infection [Unknown]
